FAERS Safety Report 9384340 (Version 2)
Quarter: 2013Q3

REPORT INFORMATION
  Report Type: Report from Study
  Country: US (occurrence: US)
  Receive Date: 20130705
  Receipt Date: 20130725
  Transmission Date: 20140515
  Serious: Yes (Hospitalization, Other)
  Sender: FDA-Public Use
  Company Number: PHEH2013US014209

PATIENT
  Age: 22 Year
  Sex: Female

DRUGS (6)
  1. GILENYA [Suspect]
     Indication: MULTIPLE SCLEROSIS
     Dosage: 0.5 MG, QD
     Route: 048
     Dates: start: 20130514, end: 20130621
  2. GILENYA [Suspect]
     Dosage: UNK
  3. NUVIGIL [Concomitant]
  4. SPRINTEC [Concomitant]
  5. DECADRAN [Concomitant]
  6. Z-PAK [Concomitant]

REACTIONS (5)
  - Convulsion [Unknown]
  - Fall [Unknown]
  - Clavicle fracture [Unknown]
  - Intraocular pressure increased [Unknown]
  - Headache [Unknown]
